FAERS Safety Report 9643619 (Version 1)
Quarter: 2013Q4

REPORT INFORMATION
  Report Type: Spontaneous
  Country: DE (occurrence: DE)
  Receive Date: 20131024
  Receipt Date: 20131024
  Transmission Date: 20140711
  Serious: Yes (Life-Threatening, Hospitalization)
  Sender: FDA-Public Use
  Company Number: DE-GLAXOSMITHKLINE-D0081509A

PATIENT
  Age: 77 Year
  Sex: Female
  Weight: 63 kg

DRUGS (5)
  1. ARIXTRA [Suspect]
     Indication: THROMBOSIS PROPHYLAXIS
     Dosage: 2.5MG PER DAY
     Route: 058
     Dates: start: 20130814, end: 20131006
  2. ATACAND [Concomitant]
     Indication: HYPERTENSION
     Dosage: 16MG TWICE PER DAY
     Route: 048
  3. AMLODIPINE [Concomitant]
     Indication: HYPERTENSION
     Dosage: 5MG TWICE PER DAY
     Route: 048
  4. BELOC-ZOK MITE [Concomitant]
     Indication: HYPERTENSION
     Dosage: 47.5MG PER DAY
     Route: 048
  5. PANTOZOL [Concomitant]
     Indication: PROPHYLAXIS
     Dosage: 20MG PER DAY
     Route: 048

REACTIONS (2)
  - Retroperitoneal haematoma [Unknown]
  - Syncope [Recovered/Resolved]
